FAERS Safety Report 10141988 (Version 2)
Quarter: 2014Q3

REPORT INFORMATION
  Report Type: Report from Study
  Country: NL (occurrence: NL)
  Receive Date: 20140429
  Receipt Date: 20140826
  Transmission Date: 20150326
  Serious: Yes (Hospitalization)
  Sender: FDA-Public Use
  Company Number: PHHY2014NL051729

PATIENT
  Age: 65 Year
  Sex: Female

DRUGS (2)
  1. ZOMETA [Suspect]
     Active Substance: ZOLEDRONIC ACID
     Indication: METASTASES TO BONE
     Dosage: 3 MG, PER 4 WEEKS
     Route: 042
     Dates: start: 20121008
  2. ZOMETA [Suspect]
     Active Substance: ZOLEDRONIC ACID
     Indication: COLON CANCER METASTATIC
     Dosage: 4 MG/100ML, ONCE EVERY 4 WEEKS
     Route: 042

REACTIONS (2)
  - Viral infection [Recovering/Resolving]
  - Lung infection [Recovering/Resolving]

NARRATIVE: CASE EVENT DATE: 20140418
